FAERS Safety Report 20877247 (Version 1)
Quarter: 2022Q2

REPORT INFORMATION
  Report Type: Spontaneous
  Country: US (occurrence: None)
  Receive Date: 20220525
  Receipt Date: 20220525
  Transmission Date: 20220720
  Serious: Yes (Hospitalization, Disabling, Other)
  Sender: FDA-Public Use
  Company Number: None

PATIENT
  Age: 54 Year
  Sex: Female
  Weight: 81.9 kg

DRUGS (17)
  1. TOPIRAMATE [Suspect]
     Active Substance: TOPIRAMATE
     Indication: Migraine
     Dosage: FREQUENCY : TWICE A DAY;?
     Route: 048
     Dates: start: 20210320, end: 20220515
  2. TOPIRAMATE [Suspect]
     Active Substance: TOPIRAMATE
     Indication: Bipolar disorder
  3. DIVALPROEX SODIUM [Suspect]
     Active Substance: DIVALPROEX SODIUM
     Indication: Bipolar disorder
     Dosage: FREQUENCY : TWICE A DAY;?
     Route: 048
     Dates: start: 20220515
  4. DIVALPROEX SODIUM [Suspect]
     Active Substance: DIVALPROEX SODIUM
     Indication: Migraine
  5. SEROQUEL [Suspect]
     Active Substance: QUETIAPINE FUMARATE
  6. RISPERIDONE [Concomitant]
     Active Substance: RISPERIDONE
  7. QUETIAPINE [Concomitant]
     Active Substance: QUETIAPINE
  8. LOSARTAN [Concomitant]
     Active Substance: LOSARTAN
  9. ATORVASTATIN [Concomitant]
     Active Substance: ATORVASTATIN
  10. SUMATRIPTAN [Concomitant]
     Active Substance: SUMATRIPTAN
  11. Biotin/collagen [Concomitant]
  12. Low dose Vitamin E [Concomitant]
  13. Low dose fish oil [Concomitant]
  14. Women^s multivitamin [Concomitant]
  15. Fluoride rinse and spit [Concomitant]
  16. NAPROXEN [Concomitant]
     Active Substance: NAPROXEN
  17. IBUPROFEN [Concomitant]
     Active Substance: IBUPROFEN

REACTIONS (8)
  - Malaise [None]
  - Abnormal behaviour [None]
  - Musculoskeletal discomfort [None]
  - Back disorder [None]
  - Musculoskeletal discomfort [None]
  - Speech disorder [None]
  - Screaming [None]
  - Impaired work ability [None]

NARRATIVE: CASE EVENT DATE: 20210301
